FAERS Safety Report 6142690-1 (Version None)
Quarter: 2009Q2

REPORT INFORMATION
  Report Type: 
  Country: None (occurrence: None)
  Receive Date: 20090403
  Receipt Date: 20090306
  Transmission Date: 20091009
  Serious: No
  Sender: FDA-Public Use
  Company Number: US-BAYER-200910790BCC

PATIENT
  Age: 52 Year
  Sex: Female
  Weight: 50 kg

DRUGS (1)
  1. MIDOL [Suspect]
     Indication: MENSTRUAL DISORDER
     Dosage: APPROXIMATELY 1-2 CAPLETS Q12H TOTALING 6 CAPLETS OVER 3 DAYS/BOTTLE COUNT 24
     Route: 048
     Dates: start: 20090301

REACTIONS (2)
  - BACK PAIN [None]
  - DYSMENORRHOEA [None]
